FAERS Safety Report 6133332-X (Version None)
Quarter: 2009Q1

REPORT INFORMATION
  Report Type: 
  Country: None (occurrence: None)
  Receive Date: 20090326
  Receipt Date: 20090318
  Transmission Date: 20090719
  Serious: Yes (Other)
  Sender: FDA-Public Use
  Company Number: US-JNJCH-2009007625

PATIENT
  Age: 75 Year
  Sex: Male
  Weight: 73.5 kg

DRUGS (1)
  1. LUDENS THROAT DROPS MENTHOL [Suspect]
     Indication: DRUG USE FOR UNKNOWN INDICATION
     Dosage: TEXT:2 BOXES PER DAY 14 CT EACH
     Route: 048

REACTIONS (2)
  - OFF LABEL USE [None]
  - TREMOR [None]
